FAERS Safety Report 7206226-6 (Version None)
Quarter: 2010Q4

REPORT INFORMATION
  Report Type: 
  Country: None (occurrence: None)
  Receive Date: 20101217
  Receipt Date: 20101202
  Transmission Date: 20110411
  Serious: Yes (Other)
  Sender: FDA-Public Use
  Company Number: DSJ-2010-21824

PATIENT
  Sex: Female

DRUGS (1)
  1. OFLOXACIN [Suspect]
     Indication: EAR INFECTION
     Dosage: AURICULAR (OTIC)
     Route: 001

REACTIONS (2)
  - ARTHRALGIA [None]
  - TENOSYNOVITIS [None]
